FAERS Safety Report 14462385 (Version 2)
Quarter: 2018Q1

REPORT INFORMATION
  Report Type: Report from Study
  Country: US (occurrence: US)
  Receive Date: 20180130
  Receipt Date: 20180314
  Transmission Date: 20180509
  Serious: Yes (Hospitalization)
  Sender: FDA-Public Use
  Company Number: US-ACTELION-A-US2018-166706

PATIENT
  Age: 71 Year
  Sex: Female
  Weight: 79.37 kg

DRUGS (3)
  1. ADCIRCA [Concomitant]
     Active Substance: TADALAFIL
  2. AMLODIPINE [Concomitant]
     Active Substance: AMLODIPINE BESYLATE
  3. OPSUMIT [Suspect]
     Active Substance: MACITENTAN
     Indication: PULMONARY ARTERIAL HYPERTENSION
     Dosage: 10 MG, QD
     Route: 048

REACTIONS (19)
  - Occult blood positive [Unknown]
  - Haematocrit decreased [Unknown]
  - Bladder spasm [Unknown]
  - Transfusion [Unknown]
  - Faeces discoloured [Unknown]
  - Haematoma [Unknown]
  - Rectal haemorrhage [Unknown]
  - Asthenia [Unknown]
  - Large intestine polyp [Unknown]
  - Condition aggravated [Unknown]
  - Haemoglobin decreased [Unknown]
  - Urinary tract infection [Unknown]
  - Anal incontinence [Unknown]
  - Internal haemorrhage [Unknown]
  - Urinary incontinence [Unknown]
  - Haematochezia [Unknown]
  - Gastrointestinal tract irritation [Unknown]
  - Decreased activity [Unknown]
  - Constipation [Unknown]
